FAERS Safety Report 13653316 (Version 1)
Quarter: 2017Q2

REPORT INFORMATION
  Report Type: Spontaneous
  Country: US (occurrence: US)
  Receive Date: 20170614
  Receipt Date: 20170614
  Transmission Date: 20170830
  Serious: No
  Sender: FDA-Public Use
  Company Number: US-ROCHE-1431161

PATIENT
  Age: 52 Year
  Sex: Female

DRUGS (2)
  1. XELODA [Suspect]
     Active Substance: CAPECITABINE
     Indication: NEOPLASM MALIGNANT
     Route: 048
     Dates: start: 20140623
  2. XELODA [Suspect]
     Active Substance: CAPECITABINE
     Dosage: 14 DAYS ON, 7 DAYS OFF
     Route: 048
     Dates: start: 20140524

REACTIONS (7)
  - Fatigue [Unknown]
  - Weight decreased [Unknown]
  - Drug dose omission [Unknown]
  - Vomiting [Unknown]
  - Skin exfoliation [Unknown]
  - Skin discolouration [Unknown]
  - Nausea [Unknown]

NARRATIVE: CASE EVENT DATE: 20140529
